FAERS Safety Report 18166932 (Version 18)
Quarter: 2022Q3

REPORT INFORMATION
  Report Type: Report from Study
  Country: US (occurrence: US)
  Receive Date: 20200819
  Receipt Date: 20220914
  Transmission Date: 20221026
  Serious: Yes (Hospitalization, Other)
  Sender: FDA-Public Use
  Company Number: US-BIOVITRUM-2020US4378

PATIENT
  Age: 67 Year
  Sex: Female

DRUGS (3)
  1. KINERET [Suspect]
     Active Substance: ANAKINRA
     Indication: Product used for unknown indication
     Dates: start: 20201130
  2. KINERET [Suspect]
     Active Substance: ANAKINRA
  3. METOPROLOL TARTRATE [Concomitant]
     Active Substance: METOPROLOL TARTRATE

REACTIONS (13)
  - Bradycardia [Unknown]
  - Wound infection [Unknown]
  - Pneumonia [Unknown]
  - Rib fracture [Unknown]
  - Accident [Unknown]
  - Skin infection [Unknown]
  - Tachycardia [Unknown]
  - Loss of personal independence in daily activities [Unknown]
  - Injection site pain [Recovering/Resolving]
  - Product quality issue [Unknown]
  - Poor quality device used [Unknown]
  - Adverse reaction [Unknown]
  - Product dose omission issue [Unknown]

NARRATIVE: CASE EVENT DATE: 20220118
